FAERS Safety Report 17335183 (Version 10)
Quarter: 2024Q3

REPORT INFORMATION
  Report Type: Report from Study
  Country: US (occurrence: US)
  Receive Date: 20200128
  Receipt Date: 20240702
  Transmission Date: 20241017
  Serious: Yes (Other)
  Sender: AKCEA THERAPEUTICS
  Company Number: US-AKCEA THERAPEUTICS-2020IS001046

PATIENT

DRUGS (2)
  1. TEGSEDI [Suspect]
     Active Substance: INOTERSEN SODIUM
     Indication: Hereditary neuropathic amyloidosis
     Dosage: 284 MILLIGRAM, QW
     Route: 058
     Dates: start: 20200308
  2. TEGSEDI [Suspect]
     Active Substance: INOTERSEN SODIUM
     Dosage: 284 MILLIGRAM, QW
     Route: 058
     Dates: start: 20191103

REACTIONS (4)
  - Glomerulonephritis [Unknown]
  - Nephrolithiasis [Unknown]
  - Kidney infection [Unknown]
  - Thrombocytopenia [Unknown]
